FAERS Safety Report 9312060 (Version 2)
Quarter: 2013Q3

REPORT INFORMATION
  Report Type: Spontaneous
  Country: GB (occurrence: GB)
  Receive Date: 20130528
  Receipt Date: 20130717
  Transmission Date: 20140515
  Serious: Yes (Life-Threatening, Other)
  Sender: FDA-Public Use
  Company Number: GB-JNJFOC-20130514173

PATIENT
  Age: 40 Year
  Sex: Female
  Weight: 95 kg

DRUGS (4)
  1. XARELTO [Suspect]
     Indication: EMBOLISM VENOUS
     Route: 048
     Dates: start: 20130410, end: 20130426
  2. XARELTO [Suspect]
     Indication: DEEP VEIN THROMBOSIS
     Route: 048
     Dates: start: 20130410, end: 20130426
  3. TRAMADOL HYDROCHLORIDE [Concomitant]
     Route: 065
  4. PARACETAMOL [Concomitant]
     Route: 065

REACTIONS (3)
  - Liver function test abnormal [Recovering/Resolving]
  - Pain [Unknown]
  - Drug ineffective [Unknown]
